FAERS Safety Report 14633136 (Version 2)
Quarter: 2018Q2

REPORT INFORMATION
  Report Type: Report from Study
  Country: US (occurrence: US)
  Receive Date: 20180313
  Receipt Date: 20180503
  Transmission Date: 20180711
  Serious: Yes (Death, Hospitalization)
  Sender: FDA-Public Use
  Company Number: US-ACTELION-A-NJ2018-168738

PATIENT
  Age: 58 Year
  Sex: Female
  Weight: 60.32 kg

DRUGS (2)
  1. OPSUMIT [Suspect]
     Active Substance: MACITENTAN
     Indication: PULMONARY ARTERIAL HYPERTENSION
     Dosage: 10 MG, QD
     Route: 048
  2. DILTIAZEM. [Concomitant]
     Active Substance: DILTIAZEM

REACTIONS (5)
  - Death [Fatal]
  - Diarrhoea [Unknown]
  - Pneumonia [Unknown]
  - Gastroenteritis viral [Unknown]
  - Nausea [Unknown]

NARRATIVE: CASE EVENT DATE: 20180415
